FAERS Safety Report 23041035 (Version 5)
Quarter: 2024Q3

REPORT INFORMATION
  Report Type: Report from Study
  Country: US (occurrence: US)
  Receive Date: 20231006
  Receipt Date: 20240923
  Transmission Date: 20241016
  Serious: Yes (Other)
  Sender: NOVARTIS
  Company Number: US-002147023-NVSC2023US216045

PATIENT
  Age: 50 Year
  Sex: Female

DRUGS (2)
  1. KESIMPTA [Suspect]
     Active Substance: OFATUMUMAB
     Indication: Multiple sclerosis
     Dosage: 20 MG, QW
     Route: 058
     Dates: start: 20231004
  2. KESIMPTA [Suspect]
     Active Substance: OFATUMUMAB
     Dosage: 20 MG, EVERY 6 WEEKS
     Route: 065
     Dates: start: 20231201

REACTIONS (17)
  - Dystonia [Unknown]
  - Haemolytic anaemia [Unknown]
  - Multiple sclerosis [Unknown]
  - Pyrexia [Unknown]
  - Headache [Unknown]
  - Full blood count decreased [Unknown]
  - Nasal congestion [Unknown]
  - Nasopharyngitis [Unknown]
  - Upper-airway cough syndrome [Unknown]
  - Hyperparathyroidism [Unknown]
  - Muscle spasms [Unknown]
  - Tachycardia [Unknown]
  - Osteopenia [Unknown]
  - Red blood cell count decreased [Unknown]
  - Anaemia macrocytic [Unknown]
  - Off label use [Unknown]
  - Hypersomnia [Unknown]

NARRATIVE: CASE EVENT DATE: 20231004
